FAERS Safety Report 6565810-3 (Version None)
Quarter: 2010Q1

REPORT INFORMATION
  Report Type: 
  Country: None (occurrence: None)
  Receive Date: 20100201
  Receipt Date: 20090422
  Transmission Date: 20100710
  Serious: No
  Sender: FDA-Public Use
  Company Number: US-ABBOTT-09P-163-0569789-00

PATIENT
  Age: 26 Year
  Sex: Female

DRUGS (5)
  1. LUPRON DEPOT [Suspect]
     Indication: ENDOMETRIOSIS
     Route: 030
     Dates: start: 20090409
  2. PROZAC [Concomitant]
     Indication: DEPRESSION
     Route: 048
  3. NORCO [Concomitant]
     Indication: PROCEDURAL PAIN
     Route: 048
     Dates: start: 20090409
  4. MOTRIN [Concomitant]
     Indication: ENDOMETRIOSIS
     Route: 048
  5. ZYRTEC [Concomitant]
     Indication: SEASONAL ALLERGY
     Route: 048

REACTIONS (9)
  - AFFECT LABILITY [None]
  - ARTHRALGIA [None]
  - DISTURBANCE IN ATTENTION [None]
  - FINE MOTOR DELAY [None]
  - HEADACHE [None]
  - HOT FLUSH [None]
  - HYPOAESTHESIA [None]
  - MEMORY IMPAIRMENT [None]
  - PARAESTHESIA [None]
